FAERS Safety Report 13879927 (Version 1)
Quarter: 2017Q3

REPORT INFORMATION
  Report Type: Spontaneous
  Country: ES (occurrence: ES)
  Receive Date: 20170818
  Receipt Date: 20170818
  Transmission Date: 20171127
  Serious: Yes (Other)
  Sender: FDA-Public Use
  Company Number: ES-ASPEN PHARMA TRADING LIMITED US-AG-2017-005215

PATIENT
  Age: 6 Year
  Sex: Female

DRUGS (13)
  1. HYDROCORTISONE. [Concomitant]
     Active Substance: HYDROCORTISONE
     Route: 037
     Dates: end: 20170327
  2. THIOGUANINE ASPEN 40 MG TABLET [Suspect]
     Active Substance: THIOGUANINE
     Indication: ACUTE LYMPHOCYTIC LEUKAEMIA
     Route: 048
     Dates: start: 20170322, end: 20170331
  3. CYTARABINE. [Suspect]
     Active Substance: CYTARABINE
     Route: 065
     Dates: end: 20170327
  4. THIOGUANINE ASPEN 40 MG TABLET [Suspect]
     Active Substance: THIOGUANINE
     Route: 048
     Dates: start: 20170410, end: 20170413
  5. ZOVIRAX 400 MG/5ML [Concomitant]
     Indication: ANTIVIRAL PROPHYLAXIS
     Route: 048
     Dates: start: 20160929
  6. CYCLOPHOSPHAMIDE. [Suspect]
     Active Substance: CYCLOPHOSPHAMIDE
     Indication: ACUTE LYMPHOCYTIC LEUKAEMIA
     Route: 042
     Dates: start: 20170322, end: 20170322
  7. HYDROCORTISONE. [Concomitant]
     Active Substance: HYDROCORTISONE
     Indication: PROPHYLAXIS
     Route: 048
     Dates: start: 20170322
  8. ONCASPAR [Suspect]
     Active Substance: PEGASPARGASE
     Indication: ACUTE LYMPHOCYTIC LEUKAEMIA
     Dosage: STRENGTH: 750 IU/ML
     Route: 030
     Dates: start: 20170228, end: 20170322
  9. CYTARABINE. [Suspect]
     Active Substance: CYTARABINE
     Indication: ACUTE LYMPHOCYTIC LEUKAEMIA
     Route: 042
     Dates: start: 20170324, end: 20170327
  10. MESNA GES 100 MG/ML SOLUTION FOR INJECTION [Concomitant]
     Indication: PROPHYLAXIS
     Route: 042
     Dates: start: 20170322, end: 20170322
  11. METHOTREXATE. [Concomitant]
     Active Substance: METHOTREXATE
     Indication: PRODUCT USED FOR UNKNOWN INDICATION
     Route: 065
     Dates: end: 20170327
  12. SEPTRIN PEDIATRICIAN 8 MG/40 MG/ML SUSPENSION [Concomitant]
     Indication: ANTIBIOTIC PROPHYLAXIS
     Dosage: STRENGTH: 8 MG/40 MG/ML
     Route: 048
     Dates: start: 20160922
  13. OMEPRAZOLE. [Concomitant]
     Active Substance: OMEPRAZOLE
     Indication: PROPHYLAXIS
     Route: 048
     Dates: start: 20170323

REACTIONS (2)
  - Agranulocytosis [Recovering/Resolving]
  - Thrombocytopenia [Recovered/Resolved]

NARRATIVE: CASE EVENT DATE: 20170331
